FAERS Safety Report 6960203-9 (Version None)
Quarter: 2010Q3

REPORT INFORMATION
  Report Type: 
  Country: None (occurrence: None)
  Receive Date: 20100901
  Receipt Date: 20100826
  Transmission Date: 20110219
  Serious: Yes (Death, Other)
  Sender: FDA-Public Use
  Company Number: US-CELGENEUS-163-20785-10081026

PATIENT
  Sex: Female

DRUGS (6)
  1. THALOMID [Suspect]
     Route: 048
     Dates: start: 20100716, end: 20100729
  2. XANAX [Concomitant]
     Indication: ANXIETY
     Route: 065
     Dates: start: 20100601, end: 20100729
  3. COMPAZINE [Concomitant]
     Indication: NAUSEA
     Route: 065
     Dates: start: 20100501, end: 20100729
  4. VICODIN [Concomitant]
     Indication: PAIN
     Route: 065
     Dates: start: 20100501, end: 20100726
  5. LASIX [Concomitant]
     Indication: ASCITES
     Route: 048
     Dates: start: 20100716, end: 20100729
  6. LASIX [Concomitant]

REACTIONS (2)
  - HEPATIC FAILURE [None]
  - MALIGNANT NEOPLASM PROGRESSION [None]
